FAERS Safety Report 25353389 (Version 1)
Quarter: 2025Q2

REPORT INFORMATION
  Report Type: Spontaneous
  Country: FR (occurrence: FR)
  Receive Date: 20250523
  Receipt Date: 20250523
  Transmission Date: 20250716
  Serious: Yes (Life-Threatening)
  Sender: FRESENIUS KABI
  Company Number: None

PATIENT
  Age: 58 Year
  Sex: Male
  Weight: 61 kg

DRUGS (6)
  1. PROPOFOL [Suspect]
     Active Substance: PROPOFOL
     Indication: Surgery
     Route: 042
     Dates: start: 20250416, end: 20250416
  2. DEXAMETHASONE [Suspect]
     Active Substance: DEXAMETHASONE
     Indication: Surgery
     Route: 042
     Dates: start: 20250416, end: 20250416
  3. SUFENTANIL [Suspect]
     Active Substance: SUFENTANIL
     Indication: Surgery
     Route: 042
     Dates: start: 20250416, end: 20250416
  4. ATRACURIUM [Suspect]
     Active Substance: ATRACURIUM
     Indication: Surgery
     Route: 042
     Dates: start: 20250416, end: 20250416
  5. KETAMINE [Suspect]
     Active Substance: KETAMINE
     Indication: Surgery
     Route: 042
     Dates: start: 20250416, end: 20250416
  6. AUGMENTIN [Suspect]
     Active Substance: AMOXICILLIN\CLAVULANATE POTASSIUM
     Indication: Surgery
     Route: 042
     Dates: start: 20250416, end: 20250416

REACTIONS (3)
  - Anaphylactic reaction [Recovered/Resolved]
  - Hypotension [Recovered/Resolved]
  - Bronchospasm [Recovered/Resolved]

NARRATIVE: CASE EVENT DATE: 20250416
